FAERS Safety Report 11995279 (Version 1)
Quarter: 2016Q1

REPORT INFORMATION
  Report Type: Spontaneous
  Country: JP (occurrence: JP)
  Receive Date: 20160203
  Receipt Date: 20160203
  Transmission Date: 20160526
  Serious: Yes (Other)
  Sender: FDA-Public Use
  Company Number: JP-TAIHO ONCOLOGY INC-JPTT160056

PATIENT

DRUGS (1)
  1. LONSURF [Suspect]
     Active Substance: TIPIRACIL HYDROCHLORIDE\TRIFLURIDINE
     Dosage: DETAILS NOT REPORTED
     Route: 048
     Dates: start: 20151104

REACTIONS (1)
  - Renal disorder [Unknown]
